FAERS Safety Report 4833192-0 (Version None)
Quarter: 2005Q4

REPORT INFORMATION
  Report Type: 
  Country: None (occurrence: None)
  Receive Date: 20051117
  Receipt Date: 20051104
  Transmission Date: 20060501
  Serious: Yes (Hospitalization, Other)
  Sender: FDA-Public Use
  Company Number: KII-2005-0019429

PATIENT
  Age: 24 Year
  Sex: Male

DRUGS (4)
  1. OXYCONTIN [Suspect]
     Dosage: ORAL
     Route: 048
  2. BENZODIAZEPINE DERIVATIVES () [Suspect]
     Dosage: ORAL
     Route: 048
  3. AMITRIPTYLINE HCL [Suspect]
     Dosage: ORAL
     Route: 048
  4. COCAINE (COCAINE) [Suspect]

REACTIONS (4)
  - AGGRESSION [None]
  - DRUG ABUSER [None]
  - MULTIPLE DRUG OVERDOSE [None]
  - SOMNOLENCE [None]
